FAERS Safety Report 17158258 (Version 10)
Quarter: 2025Q4

REPORT INFORMATION
  Report Type: Spontaneous
  Country: US (occurrence: US)
  Receive Date: 20191216
  Receipt Date: 20251015
  Transmission Date: 20260118
  Serious: Yes (Other)
  Sender: PFIZER
  Company Number: US-PFIZER INC-2019535099

PATIENT
  Age: 79 Year
  Sex: Female
  Weight: 58.503 kg

DRUGS (4)
  1. IBRANCE [Suspect]
     Active Substance: PALBOCICLIB
     Indication: Breast cancer female
     Dosage: 100 MG, (21 DAYS)
     Dates: start: 201811
  2. IBRANCE [Suspect]
     Active Substance: PALBOCICLIB
     Dosage: 100 MG, CYCLIC (1 TAB. DAILY THEN 7 DAYS OFF OF 28 DAY CYCLE)
     Route: 048
  3. FASLODEX [Concomitant]
     Active Substance: FULVESTRANT
     Dosage: UNK, MONTHLY (ONCE A MONTH)
  4. GABAPENTIN [Concomitant]
     Active Substance: GABAPENTIN
     Dosage: 100 MG
     Dates: start: 201906

REACTIONS (5)
  - Compression fracture [Unknown]
  - Thrombocytopenia [Unknown]
  - Cardiac disorder [Unknown]
  - Spinal disorder [Recovered/Resolved]
  - Anaemia [Unknown]
